FAERS Safety Report 15995751 (Version 1)
Quarter: 2019Q1

REPORT INFORMATION
  Report Type: Spontaneous
  Country: US (occurrence: US)
  Receive Date: 20190222
  Receipt Date: 20190222
  Transmission Date: 20190418
  Serious: No
  Sender: FDA-Public Use
  Company Number: US-PERRIGO-18US004589

PATIENT
  Age: 89 Year
  Sex: Male
  Weight: 62.59 kg

DRUGS (3)
  1. LOPERAMIDE HYDROCHLORIDE. [Suspect]
     Active Substance: LOPERAMIDE HYDROCHLORIDE
     Indication: DIARRHOEA
     Dosage: 4 MG AFTER 1ST LOOSE STOOL, 2 MG AFTER 1 SUBSEQUENT LOOSE STOOL, PRN
     Route: 048
     Dates: start: 2017, end: 20180414
  2. LOPERAMIDE HYDROCHLORIDE. [Suspect]
     Active Substance: LOPERAMIDE HYDROCHLORIDE
     Indication: PROPHYLAXIS AGAINST DIARRHOEA
     Dosage: 4 MG, QD
     Route: 048
     Dates: start: 20180415, end: 20180417
  3. LOPERAMIDE HYDROCHLORIDE. [Suspect]
     Active Substance: LOPERAMIDE HYDROCHLORIDE
     Dosage: 4 MG AFTER 1ST LOOSE STOOL, 2 MG AFTER 1 SUBSEQUENT LOOSE STOOL, PRN
     Route: 048
     Dates: start: 20180418

REACTIONS (2)
  - Off label use [Recovered/Resolved]
  - Expired product administered [Unknown]

NARRATIVE: CASE EVENT DATE: 201801
